FAERS Safety Report 4544244-7 (Version None)
Quarter: 2004Q4

REPORT INFORMATION
  Report Type: 
  Country: None (occurrence: None)
  Receive Date: 20041230
  Receipt Date: 20041221
  Transmission Date: 20050328
  Serious: Yes (Hospitalization, Other)
  Sender: FDA-Public Use
  Company Number: HQWYE124227MAY04

PATIENT
  Sex: Male

DRUGS (2)
  1. ADVIL [Suspect]
     Dosage: TABLET ORAL
     Route: 048
  2. ZITHROMAX [Suspect]

REACTIONS (5)
  - BILIARY DILATATION [None]
  - DRUG INTERACTION [None]
  - HEPATIC FAILURE [None]
  - HEPATITIS [None]
  - PROTHROMBIN TIME SHORTENED [None]
